FAERS Safety Report 7396528-5 (Version None)
Quarter: 2011Q2

REPORT INFORMATION
  Report Type: 
  Country: None (occurrence: None)
  Receive Date: 20110406
  Receipt Date: 20110401
  Transmission Date: 20111010
  Serious: Yes (Hospitalization)
  Sender: FDA-Public Use
  Company Number: JP-BRISTOL-MYERS SQUIBB COMPANY-15605215

PATIENT
  Age: 53 Year
  Sex: Female

DRUGS (5)
  1. PACLITAXEL [Suspect]
     Indication: BREAST CANCER
     Dates: start: 20041201
  2. PIRARUBICIN [Suspect]
     Indication: BREAST CANCER
  3. FLUOROURACIL [Suspect]
     Indication: BREAST CANCER
  4. CYCLOPHOSPHAMIDE [Suspect]
     Indication: BREAST CANCER
  5. TRASTUZUMAB [Concomitant]
     Indication: BREAST CANCER
     Dosage: DISCONTINUIED
     Dates: start: 20041201

REACTIONS (2)
  - SHOCK [None]
  - FEBRILE NEUTROPENIA [None]
